FAERS Safety Report 19329845 (Version 6)
Quarter: 2022Q1

REPORT INFORMATION
  Report Type: Report from Study
  Country: US (occurrence: US)
  Receive Date: 20210528
  Receipt Date: 20220119
  Transmission Date: 20220423
  Serious: No
  Sender: FDA-Public Use
  Company Number: NVSC2021US120925

PATIENT
  Age: 53 Year
  Sex: Male

DRUGS (7)
  1. ENTRESTO [Suspect]
     Active Substance: SACUBITRIL\VALSARTAN
     Indication: Cardiomyopathy
     Dosage: 1 DF, BID
     Route: 048
     Dates: start: 20210519
  2. ENTRESTO [Suspect]
     Active Substance: SACUBITRIL\VALSARTAN
     Indication: Cardiac failure
  3. CARVEDILOL [Suspect]
     Active Substance: CARVEDILOL
     Indication: Cardiac failure
     Dosage: 6.25 MG, BID
     Route: 048
     Dates: start: 2020
  4. CARVEDILOL [Suspect]
     Active Substance: CARVEDILOL
     Dosage: 3.125 MG, BID
     Route: 065
     Dates: end: 20210819
  5. METOPROLOL [Suspect]
     Active Substance: METOPROLOL
     Indication: Product used for unknown indication
     Dosage: 25 MG, QD (AT NIGHT)
     Route: 048
     Dates: start: 202108
  6. METOPROLOL [Suspect]
     Active Substance: METOPROLOL
     Dosage: 25 MG, QD  (ONE HALF TABLET ONCE A DAY, AT NIGHT)
     Route: 048
     Dates: start: 202108
  7. UNSPECIFIED INGREDIENT [Concomitant]
     Active Substance: UNSPECIFIED INGREDIENT
     Indication: Product used for unknown indication
     Dosage: UNK
     Route: 065

REACTIONS (15)
  - Weight fluctuation [Not Recovered/Not Resolved]
  - Weight increased [Unknown]
  - Weight decreased [Unknown]
  - Ejection fraction decreased [Not Recovered/Not Resolved]
  - Hypotension [Recovered/Resolved]
  - Diarrhoea [Recovered/Resolved]
  - Hypotension [Recovered/Resolved]
  - Dizziness [Recovered/Resolved]
  - Product dose omission issue [Unknown]
  - Dizziness [Recovering/Resolving]
  - White coat hypertension [Unknown]
  - Blood iron decreased [Unknown]
  - Blood glucose increased [Unknown]
  - Anxiety [Unknown]
  - Claustrophobia [Unknown]

NARRATIVE: CASE EVENT DATE: 20200805
